FAERS Safety Report 23683274 (Version 1)
Quarter: 2024Q1

REPORT INFORMATION
  Report Type: Spontaneous
  Country: US (occurrence: US)
  Receive Date: 20240328
  Receipt Date: 20240328
  Transmission Date: 20240410
  Serious: No
  Sender: FDA-Public Use
  Company Number: US-Calliditas-2024CAL00488

PATIENT
  Age: 50 Year
  Sex: Female
  Weight: 93.4 kg

DRUGS (1)
  1. TARPEYO [Suspect]
     Active Substance: BUDESONIDE
     Indication: IgA nephropathy
     Dosage: 16MG (4MG CAPSULES) ONCE DAILY
     Route: 048
     Dates: start: 20240127

REACTIONS (5)
  - Poor quality sleep [Unknown]
  - Tremor [Unknown]
  - Nervousness [Unknown]
  - Vomiting [Unknown]
  - Product dose omission issue [Unknown]
